FAERS Safety Report 11500043 (Version 1)
Quarter: 2015Q3

REPORT INFORMATION
  Report Type: Spontaneous
  Country: CA (occurrence: CA)
  Receive Date: 20150914
  Receipt Date: 20150914
  Transmission Date: 20151125
  Serious: Yes (Hospitalization, Other)
  Sender: FDA-Public Use
  Company Number: CA-HOSPIRA-3001651

PATIENT
  Age: 63 Year
  Sex: Female

DRUGS (1)
  1. VITAMIN K [Suspect]
     Active Substance: PHYTONADIONE
     Indication: PROCOAGULANT THERAPY

REACTIONS (3)
  - Deep vein thrombosis [Recovered/Resolved]
  - Atrial thrombosis [Recovered/Resolved]
  - Cerebrovascular accident [Recovering/Resolving]
